FAERS Safety Report 23228898 (Version 1)
Quarter: 2023Q4

REPORT INFORMATION
  Report Type: Spontaneous
  Country: US (occurrence: None)
  Receive Date: 20231126
  Receipt Date: 20231126
  Transmission Date: 20240110
  Serious: No
  Sender: FDA-Public Use
  Company Number: US-ROCHE-3282945

PATIENT
  Sex: Female

DRUGS (6)
  1. HERCEPTIN [Suspect]
     Active Substance: TRASTUZUMAB
     Indication: Radiotherapy
     Dosage: STRENGTH 150MG/VL
     Route: 041
     Dates: start: 202206
  2. HERCEPTIN [Suspect]
     Active Substance: TRASTUZUMAB
     Indication: Breast cancer female
  3. HERCEPTIN [Suspect]
     Active Substance: TRASTUZUMAB
     Indication: Senile osteoporosis
  4. PERJETA [Suspect]
     Active Substance: PERTUZUMAB
     Indication: Radiotherapy
     Dosage: STRENGTH 420 MG/14ML
     Route: 042
     Dates: start: 202206
  5. PERJETA [Suspect]
     Active Substance: PERTUZUMAB
     Indication: Breast cancer female
  6. PERJETA [Suspect]
     Active Substance: PERTUZUMAB
     Indication: Senile osteoporosis

REACTIONS (2)
  - Vision blurred [Unknown]
  - Ocular hyperaemia [Unknown]
